FAERS Safety Report 9602298 (Version 2)
Quarter: 2013Q4

REPORT INFORMATION
  Report Type: Spontaneous
  Country: US (occurrence: US)
  Receive Date: 20131007
  Receipt Date: 20131007
  Transmission Date: 20140711
  Serious: No
  Sender: FDA-Public Use
  Company Number: US-GLAXOSMITHKLINE-A0966774A

PATIENT
  Age: 50 Year
  Sex: Female
  Weight: 75.82 kg

DRUGS (9)
  1. BENLYSTA [Suspect]
     Indication: SYSTEMIC LUPUS ERYTHEMATOSUS
     Dosage: 10MGK CYCLIC
     Route: 042
     Dates: start: 201105
  2. PREDNISONE [Concomitant]
  3. ATENOLOL [Concomitant]
     Indication: BLOOD PRESSURE
  4. LIPITOR [Concomitant]
  5. LEVOTHYROXINE [Concomitant]
  6. METFORMIN [Concomitant]
  7. ACTOS [Concomitant]
  8. VITAMIN D [Concomitant]
     Indication: MEDICAL DIET
  9. MULTIVITAMIN [Concomitant]

REACTIONS (5)
  - Alopecia [Not Recovered/Not Resolved]
  - Diarrhoea [Not Recovered/Not Resolved]
  - Abdominal pain upper [Not Recovered/Not Resolved]
  - Rash papular [Not Recovered/Not Resolved]
  - Blister [Not Recovered/Not Resolved]
